FAERS Safety Report 20359570 (Version 2)
Quarter: 2022Q1

REPORT INFORMATION
  Report Type: Spontaneous
  Country: US (occurrence: None)
  Receive Date: 20220121
  Receipt Date: 20220323
  Transmission Date: 20220423
  Serious: No
  Sender: FDA-Public Use
  Company Number: 2022A016693

PATIENT
  Age: 21525 Day
  Sex: Female
  Weight: 96.2 kg

DRUGS (1)
  1. FASENRA [Suspect]
     Active Substance: BENRALIZUMAB
     Indication: Asthma
     Dosage: 30 MG/ML; EVERY 4 WEEKS FOR THE FIRST 3 DOSES THEN EVERY 8 WEEKS
     Route: 058
     Dates: start: 20220110

REACTIONS (4)
  - Injection site pain [Not Recovered/Not Resolved]
  - Incorrect dose administered by device [Unknown]
  - Device use issue [Unknown]
  - Device leakage [Unknown]

NARRATIVE: CASE EVENT DATE: 20220110
